FAERS Safety Report 19271941 (Version 1)
Quarter: 2021Q2

REPORT INFORMATION
  Report Type: Spontaneous
  Country: US (occurrence: US)
  Receive Date: 20210519
  Receipt Date: 20210519
  Transmission Date: 20210717
  Serious: No
  Sender: FDA-Public Use
  Company Number: US-NOVEN PHARMACEUTICALS, INC.-2021US000737

PATIENT
  Age: 9 Year
  Sex: Female
  Weight: 30.84 kg

DRUGS (2)
  1. VITAMINS NOS [Concomitant]
     Active Substance: VITAMINS
     Indication: PRODUCT USED FOR UNKNOWN INDICATION
     Dosage: UNK, DAILY
  2. DAYTRANA [Suspect]
     Active Substance: METHYLPHENIDATE
     Indication: ATTENTION DEFICIT HYPERACTIVITY DISORDER
     Dosage: 10 MG/9HRS, UNK
     Route: 062
     Dates: start: 20210128

REACTIONS (5)
  - Device adhesion issue [Not Recovered/Not Resolved]
  - No adverse event [Unknown]
  - Device difficult to use [Not Recovered/Not Resolved]
  - Device breakage [Not Recovered/Not Resolved]
  - Product administration error [Not Recovered/Not Resolved]

NARRATIVE: CASE EVENT DATE: 2021
